FAERS Safety Report 5128235-3 (Version None)
Quarter: 2006Q4

REPORT INFORMATION
  Report Type: 
  Country: None (occurrence: None)
  Receive Date: 20061011
  Receipt Date: 20060926
  Transmission Date: 20070319
  Serious: Yes (Other)
  Sender: FDA-Public Use
  Company Number: CHNY2006DE02708

PATIENT
  Sex: Female

DRUGS (1)
  1. NICOTINELL TTS (NCH) (NICOTINE) TRANS-THERAPEUTIC-SYSTEM [Suspect]
     Indication: SMOKING CESSATION THERAPY
     Dosage: 21 MG, QD, TRANSDERMAL
     Route: 062
     Dates: start: 20060922, end: 20060926

REACTIONS (5)
  - COUGH [None]
  - DRY THROAT [None]
  - SALIVARY HYPERSECRETION [None]
  - SENSATION OF FOREIGN BODY [None]
  - TONGUE BLISTERING [None]
